FAERS Safety Report 13073771 (Version 1)
Quarter: 2016Q4

REPORT INFORMATION
  Report Type: Report from Study
  Country: IT (occurrence: IT)
  Receive Date: 20161229
  Receipt Date: 20161229
  Transmission Date: 20170207
  Serious: Yes (Hospitalization, Other)
  Sender: FDA-Public Use
  Company Number: IT-MYLANLABS-2016M1057898

PATIENT

DRUGS (7)
  1. MIRTAZAPINE. [Suspect]
     Active Substance: MIRTAZAPINE
     Indication: PRODUCT USED FOR UNKNOWN INDICATION
     Dosage: 5 DF, TOTAL
     Route: 048
     Dates: start: 20161112, end: 20161112
  2. TAVOR (LORAZEPAM) [Suspect]
     Active Substance: LORAZEPAM
     Indication: PRODUCT USED FOR UNKNOWN INDICATION
     Dosage: UNK UNK, TOTAL
     Route: 048
     Dates: start: 20161112, end: 20161112
  3. VALDORM                            /00246102/ [Concomitant]
     Active Substance: FLURAZEPAM HYDROCHLORIDE
     Indication: PRODUCT USED FOR UNKNOWN INDICATION
     Dosage: UNK
     Route: 048
  4. DEPAKIN [Suspect]
     Active Substance: VALPROATE SODIUM
     Indication: PRODUCT USED FOR UNKNOWN INDICATION
     Dosage: 6000 MG, TOTAL
     Route: 048
     Dates: start: 20161112, end: 20161112
  5. CONTROL                            /00273201/ [Suspect]
     Active Substance: LORAZEPAM
     Indication: PRODUCT USED FOR UNKNOWN INDICATION
     Dosage: UNK UNK, TOTAL
     Route: 048
     Dates: start: 20161112, end: 20161112
  6. XANAX [Suspect]
     Active Substance: ALPRAZOLAM
     Indication: PRODUCT USED FOR UNKNOWN INDICATION
     Dosage: UNK UNK, TOTAL
     Route: 048
     Dates: start: 20161112, end: 20161112
  7. PRINZIDE [Suspect]
     Active Substance: HYDROCHLOROTHIAZIDE\LISINOPRIL
     Indication: PRODUCT USED FOR UNKNOWN INDICATION
     Dosage: 11 DF, TOTAL
     Route: 048
     Dates: start: 20161112, end: 20161112

REACTIONS (4)
  - Intentional self-injury [Unknown]
  - Sopor [Unknown]
  - Drug abuse [Unknown]
  - Poisoning [Unknown]

NARRATIVE: CASE EVENT DATE: 20161112
